FAERS Safety Report 16397706 (Version 1)
Quarter: 2019Q2

REPORT INFORMATION
  Report Type: Spontaneous
  Country: SE (occurrence: SE)
  Receive Date: 20190606
  Receipt Date: 20190606
  Transmission Date: 20190711
  Serious: Yes (Other)
  Sender: FDA-Public Use
  Company Number: SE-ACCORD-131603

PATIENT
  Age: 43 Year
  Sex: Female
  Weight: 126 kg

DRUGS (13)
  1. SALAZOPYRINE [Concomitant]
     Active Substance: SULFASALAZINE
  2. LUNELAX [Concomitant]
     Active Substance: HERBALS\PLANTAGO OVATA LEAF
     Dates: start: 2014
  3. PREDNISOLONE. [Concomitant]
     Active Substance: PREDNISOLONE
     Dates: start: 2016
  4. DESLORATADINE. [Concomitant]
     Active Substance: DESLORATADINE
  5. CARVEDILOL/CARVEDILOL HYDROCHLODRIDE [Concomitant]
     Dates: start: 20190119
  6. PARACETAMOL [Concomitant]
     Active Substance: ACETAMINOPHEN
     Dates: start: 201108
  7. SPIRONOLACTONE. [Suspect]
     Active Substance: SPIRONOLACTONE
     Indication: HYPERTENSION
     Dosage: 1 TABLET ONCE A DAY
     Dates: start: 20190306, end: 20190323
  8. BUFOMIX EASYHALER [Concomitant]
     Active Substance: BUDESONIDE\FORMOTEROL FUMARATE
  9. MONTELUKAST/MONTELUKAST SODIUM [Concomitant]
     Dates: start: 2005
  10. LOSARTAN COMP [Concomitant]
     Active Substance: HYDROCHLOROTHIAZIDE\LOSARTAN POTASSIUM
     Dates: start: 20190119
  11. FURIX (FUROSEMIDE) [Concomitant]
     Active Substance: FUROSEMIDE
     Dates: start: 20190114
  12. BUVENTOL EASYHALER [Concomitant]
     Active Substance: ALBUTEROL SULFATE
  13. AMLODIPINE [Concomitant]
     Active Substance: AMLODIPINE BESYLATE
     Dates: start: 20190119

REACTIONS (7)
  - Mental impairment [Recovered/Resolved]
  - Decreased appetite [Recovered/Resolved]
  - Fatigue [Recovered/Resolved]
  - Personality change [Recovered/Resolved]
  - Memory impairment [Recovered/Resolved]
  - Personality disorder [Recovered/Resolved]
  - Dizziness [Recovered/Resolved]

NARRATIVE: CASE EVENT DATE: 201903
